FAERS Safety Report 20220141 (Version 1)
Quarter: 2021Q4

REPORT INFORMATION
  Report Type: Spontaneous
  Country: IR (occurrence: IR)
  Receive Date: 20211222
  Receipt Date: 20211222
  Transmission Date: 20220303
  Serious: Yes (Hospitalization, Other)
  Sender: FDA-Public Use
  Company Number: IR-ATLANTIDE PHARMACEUTICALS AG-2021ATL000003

PATIENT
  Age: 17 Year
  Sex: Female

DRUGS (2)
  1. LAMOTRIGINE [Suspect]
     Active Substance: LAMOTRIGINE
     Indication: Suicide attempt
     Dosage: 1000 MILLIGRAM
     Route: 048
  2. CITALOPRAM [Suspect]
     Active Substance: CITALOPRAM HYDROBROMIDE
     Indication: Suicide attempt
     Dosage: 400 MILLIGRAM
     Route: 048

REACTIONS (2)
  - Serotonin syndrome [Recovered/Resolved]
  - Overdose [Unknown]
